FAERS Safety Report 23732775 (Version 7)
Quarter: 2024Q2

REPORT INFORMATION
  Report Type: Report from Study
  Country: CL (occurrence: CL)
  Receive Date: 20240411
  Receipt Date: 20240530
  Transmission Date: 20240715
  Serious: Yes (Life-Threatening, Other)
  Sender: FDA-Public Use
  Company Number: CL-002147023-NVSC2024CL019852

PATIENT
  Age: 71 Year
  Sex: Female

DRUGS (3)
  1. SCEMBLIX [Suspect]
     Active Substance: ASCIMINIB HYDROCHLORIDE
     Indication: Chronic myeloid leukaemia
     Dosage: UNK
     Route: 048
     Dates: start: 20230901
  2. SCEMBLIX [Suspect]
     Active Substance: ASCIMINIB HYDROCHLORIDE
     Dosage: 30 MG, QD
     Route: 048
     Dates: start: 20230922
  3. SCEMBLIX [Suspect]
     Active Substance: ASCIMINIB HYDROCHLORIDE
     Dosage: 40 MG, QD
     Route: 048
     Dates: start: 202309, end: 202310

REACTIONS (18)
  - Feeling abnormal [Unknown]
  - Chronic myeloid leukaemia [Unknown]
  - Burning sensation [Unknown]
  - Malaise [Unknown]
  - Skin burning sensation [Unknown]
  - Memory impairment [Recovering/Resolving]
  - Fear [Unknown]
  - Skin exfoliation [Unknown]
  - Pain in extremity [Unknown]
  - Back pain [Unknown]
  - Gait inability [Unknown]
  - Renal disorder [Unknown]
  - Urinary incontinence [Unknown]
  - Blood pressure increased [Recovering/Resolving]
  - Arthralgia [Unknown]
  - Mobility decreased [Unknown]
  - Drug ineffective [Unknown]
  - Off label use [Unknown]

NARRATIVE: CASE EVENT DATE: 20230901
